FAERS Safety Report 7419973-8 (Version None)
Quarter: 2011Q2

REPORT INFORMATION
  Report Type: 
  Country: None (occurrence: None)
  Receive Date: 20110413
  Receipt Date: 20110413
  Transmission Date: 20111010
  Serious: Yes (Hospitalization)
  Sender: FDA-Public Use
  Company Number: None

PATIENT
  Sex: Male
  Weight: 78.6 kg

DRUGS (1)
  1. MIRTAZAPINE [Suspect]
     Indication: SLEEP DISORDER
     Dosage: 15MG PER DAY ORAL
     Route: 048
     Dates: start: 20110330

REACTIONS (3)
  - MOVEMENT DISORDER [None]
  - ABNORMAL DREAMS [None]
  - APHASIA [None]
